FAERS Safety Report 6842359-1 (Version None)
Quarter: 2010Q3

REPORT INFORMATION
  Report Type: 
  Country: None (occurrence: None)
  Receive Date: 20100714
  Receipt Date: 20070730
  Transmission Date: 20110219
  Serious: No
  Sender: FDA-Public Use
  Company Number: US-PFIZER INC-2007063584

PATIENT
  Sex: Male
  Weight: 68.181 kg

DRUGS (13)
  1. CHANTIX [Suspect]
     Indication: SMOKING CESSATION THERAPY
     Route: 048
     Dates: start: 20070706
  2. TRICOR [Concomitant]
  3. NEXIUM [Concomitant]
  4. LASIX [Concomitant]
  5. POTASSIUM CHLORIDE [Concomitant]
  6. DIGOXIN [Concomitant]
  7. VALSARTAN [Concomitant]
  8. TOPROL-XL [Concomitant]
  9. FOLIC ACID [Concomitant]
  10. VITAMINS [Concomitant]
  11. ZYRTEC [Concomitant]
  12. MONTELUKAST SODIUM [Concomitant]
  13. ACIDOPHILUS [Concomitant]

REACTIONS (3)
  - NOCTURIA [None]
  - POLLAKIURIA [None]
  - SLEEP DISORDER [None]
